FAERS Safety Report 11300850 (Version 1)
Quarter: 2015Q3

REPORT INFORMATION
  Report Type: Spontaneous
  Country: US (occurrence: US)
  Receive Date: 20150722
  Receipt Date: 20150722
  Transmission Date: 20151125
  Serious: No
  Sender: FDA-Public Use
  Company Number: US-ELI_LILLY_AND_COMPANY-US201310003566

PATIENT
  Age: 7 Year
  Sex: Female
  Weight: 20.95 kg

DRUGS (7)
  1. HUMATROPE [Suspect]
     Active Substance: SOMATROPIN
     Dosage: 0.4 MG, QD
     Route: 058
     Dates: start: 20140128
  2. HUMATROPE [Suspect]
     Active Substance: SOMATROPIN
     Dosage: 0.5 MG, QD
  3. HUMATROPE [Suspect]
     Active Substance: SOMATROPIN
     Dosage: 0.4 MG, WEEKLY (1/W)
     Dates: start: 20131111
  4. HUMATROPE [Suspect]
     Active Substance: SOMATROPIN
     Indication: FOETAL GROWTH RESTRICTION
     Dosage: 0.55 MG, UNK
     Route: 058
     Dates: start: 20131021
  5. HUMATROPE [Suspect]
     Active Substance: SOMATROPIN
     Dosage: 0.2 MG, QD
     Route: 058
     Dates: start: 20131212
  6. HUMATROPE [Suspect]
     Active Substance: SOMATROPIN
     Dosage: 0.45 MG, WEEKLY (1/W)
  7. HUMATROPE [Suspect]
     Active Substance: SOMATROPIN
     Indication: SMALL FOR DATES BABY
     Dosage: 0.55 MG, QD
     Route: 058
     Dates: start: 20110314, end: 20131007

REACTIONS (4)
  - Headache [Recovered/Resolved]
  - Aggression [Not Recovered/Not Resolved]
  - Accidental overdose [Recovered/Resolved]
  - Irritability [Recovered/Resolved]

NARRATIVE: CASE EVENT DATE: 20131007
